FAERS Safety Report 10979028 (Version 8)
Quarter: 2016Q1

REPORT INFORMATION
  Report Type: Spontaneous
  Country: PR (occurrence: PR)
  Receive Date: 20150402
  Receipt Date: 20160115
  Transmission Date: 20160525
  Serious: Yes (Other)
  Sender: FDA-Public Use
  Company Number: US-PFIZER INC-2015112637

PATIENT
  Age: 50 Year
  Sex: Female
  Weight: 54 kg

DRUGS (4)
  1. LYRICA [Suspect]
     Active Substance: PREGABALIN
     Indication: FIBROMYALGIA
     Dosage: 225 MG, 2X/DAY
     Route: 048
     Dates: end: 201510
  2. CELEBREX [Suspect]
     Active Substance: CELECOXIB
     Indication: OSTEOARTHRITIS
     Dosage: 200 MG, 1X/DAY
     Route: 048
     Dates: end: 201510
  3. SKELAXIN [Suspect]
     Active Substance: METAXALONE
     Indication: ARTHRITIS
     Dosage: 800 MG, 2X/DAY
     Route: 048
     Dates: end: 201510
  4. SKELAXIN [Suspect]
     Active Substance: METAXALONE
     Indication: OSTEOARTHRITIS

REACTIONS (4)
  - Arthritis [Unknown]
  - Back pain [Unknown]
  - Gait disturbance [Unknown]
  - Back disorder [Unknown]
